FAERS Safety Report 14677834 (Version 1)
Quarter: 2018Q1

REPORT INFORMATION
  Report Type: Spontaneous
  Country: FR (occurrence: FR)
  Receive Date: 20180326
  Receipt Date: 20180326
  Transmission Date: 20180509
  Serious: Yes (Other)
  Sender: FDA-Public Use
  Company Number: FR-MERCK KGAA-2044475

PATIENT
  Age: 74 Year
  Sex: Male

DRUGS (3)
  1. NOVOTHYROX [Suspect]
     Active Substance: LEVOTHYROXINE SODIUM
     Indication: HYPOTHYROIDISM
  2. LEVOTHYROX NF [Suspect]
     Active Substance: LEVOTHYROXINE SODIUM
  3. NOVOTHYROX [Suspect]
     Active Substance: LEVOTHYROXINE SODIUM
     Indication: GOITRE

REACTIONS (20)
  - Gait disturbance [None]
  - Pain in extremity [Recovering/Resolving]
  - Fatigue [Recovering/Resolving]
  - Loss of personal independence in daily activities [None]
  - Blood glucose increased [Recovering/Resolving]
  - Blood triglycerides increased [None]
  - Visual impairment [Recovering/Resolving]
  - Myalgia [Recovering/Resolving]
  - Social avoidant behaviour [None]
  - Dysstasia [None]
  - Blood creatine increased [Not Recovered/Not Resolved]
  - Renal failure [None]
  - Glycosylated haemoglobin increased [Recovered/Resolved]
  - Photophobia [Recovering/Resolving]
  - Somnolence [Recovering/Resolving]
  - Hypothyroidism [Recovered/Resolved]
  - Middle insomnia [Recovering/Resolving]
  - Weight increased [None]
  - Mood swings [None]
  - White blood cell count increased [None]

NARRATIVE: CASE EVENT DATE: 20170316
